FAERS Safety Report 14337179 (Version 1)
Quarter: 2017Q4

REPORT INFORMATION
  Report Type: Spontaneous
  Country: RU (occurrence: RU)
  Receive Date: 20171229
  Receipt Date: 20171229
  Transmission Date: 20180321
  Serious: Yes (Other)
  Sender: FDA-Public Use
  Company Number: RU-ASTRAZENECA-2017SF32102

PATIENT
  Age: 52 Year
  Sex: Female

DRUGS (3)
  1. FORXIGA [Suspect]
     Active Substance: DAPAGLIFLOZIN
     Indication: TYPE 2 DIABETES MELLITUS
     Route: 048
     Dates: start: 20161111, end: 20171216
  2. SIOFOR [Concomitant]
     Active Substance: METFORMIN HYDROCHLORIDE
  3. GLIBOMET [Concomitant]
     Active Substance: GLYBURIDE\METFORMIN HYDROCHLORIDE

REACTIONS (1)
  - Benign gastric neoplasm [Recovered/Resolved]
